FAERS Safety Report 25125727 (Version 1)
Quarter: 2025Q1

REPORT INFORMATION
  Report Type: Spontaneous
  Country: FR (occurrence: FR)
  Receive Date: 20250326
  Receipt Date: 20250326
  Transmission Date: 20250408
  Serious: Yes (Other)
  Sender: MERCK KGAA
  Company Number: FR-Merck Healthcare KGaA-2025014802

PATIENT
  Sex: Female

DRUGS (1)
  1. LEVOTHYROXINE [Suspect]
     Active Substance: LEVOTHYROXINE
     Indication: Product used for unknown indication

REACTIONS (4)
  - Uterine haemorrhage [Unknown]
  - Hormone level abnormal [Unknown]
  - Hyperthyroidism [Unknown]
  - Surgery [Unknown]

NARRATIVE: CASE EVENT DATE: 20240101
